FAERS Safety Report 7780255-6 (Version None)
Quarter: 2011Q3

REPORT INFORMATION
  Report Type: 
  Country: None (occurrence: None)
  Receive Date: 20110927
  Receipt Date: 20110923
  Transmission Date: 20111222
  Serious: Yes (Other)
  Sender: FDA-Public Use
  Company Number: US-PFIZER INC-2011227898

PATIENT
  Sex: Female
  Weight: 51.701 kg

DRUGS (9)
  1. LORTAB [Concomitant]
     Dosage: UNK
     Route: 048
  2. CRESTOR [Concomitant]
     Indication: BLOOD CHOLESTEROL INCREASED
     Dosage: 10 MG, DAILY
     Route: 048
  3. AMLODIPINE BESILATE [Concomitant]
     Indication: HYPERTENSION
     Dosage: 5 MG, DAILY
     Route: 048
  4. PROZAC [Concomitant]
     Indication: ANXIETY
     Dosage: 20 MG, UNK
     Route: 048
     Dates: start: 20110101
  5. CHANTIX [Suspect]
     Indication: SMOKING CESSATION THERAPY
     Dosage: 0.5 MG, 2X/DAY
     Route: 048
     Dates: start: 20110902, end: 20110901
  6. XANAX [Concomitant]
     Indication: ANXIETY
     Dosage: 0.5 MG, AS NEEDED (UP TO FOUR TIMES A DAY)
     Route: 048
  7. NEXIUM [Concomitant]
     Indication: GASTROOESOPHAGEAL REFLUX DISEASE
     Dosage: 40 MG, UNK
     Route: 048
  8. OPANA [Concomitant]
     Indication: PAIN
     Dosage: UNK
     Route: 048
     Dates: end: 20110901
  9. PROZAC [Concomitant]
     Indication: DEPRESSION

REACTIONS (8)
  - ARTHRALGIA [None]
  - DRUG INEFFECTIVE [None]
  - LOCAL SWELLING [None]
  - INTERVERTEBRAL DISC PROTRUSION [None]
  - EXOSTOSIS [None]
  - DEPRESSION [None]
  - OEDEMA PERIPHERAL [None]
  - JOINT SWELLING [None]
